FAERS Safety Report 20037777 (Version 1)
Quarter: 2021Q4

REPORT INFORMATION
  Report Type: Spontaneous
  Country: US (occurrence: US)
  Receive Date: 20211105
  Receipt Date: 20211105
  Transmission Date: 20220303
  Serious: No
  Sender: FDA-Public Use
  Company Number: US-BRISTOL-MYERS SQUIBB COMPANY-BMS-2021-037670

PATIENT
  Age: 73 Year
  Sex: Female

DRUGS (2)
  1. ATORVASTATIN CALCIUM [Suspect]
     Active Substance: ATORVASTATIN CALCIUM
     Dosage: UNK
  2. ELIQUIS [Suspect]
     Active Substance: APIXABAN
     Indication: Factor V Leiden mutation
     Dosage: 2.5 MILLIGRAM, BID
     Route: 048
     Dates: start: 2001

REACTIONS (3)
  - Tooth disorder [Unknown]
  - Product commingling [Unknown]
  - Intentional product use issue [Unknown]

NARRATIVE: CASE EVENT DATE: 20010101
